FAERS Safety Report 14191925 (Version 2)
Quarter: 2017Q4

REPORT INFORMATION
  Report Type: Spontaneous
  Country: US (occurrence: US)
  Receive Date: 20171115
  Receipt Date: 20171127
  Transmission Date: 20180321
  Serious: Yes (Other)
  Sender: FDA-Public Use
  Company Number: US-IMPAX LABORATORIES, INC-2017-IPXL-03150

PATIENT
  Age: 21 Year
  Sex: Male

DRUGS (2)
  1. PENTOXIFYLLINE ER [Suspect]
     Active Substance: PENTOXIFYLLINE
     Indication: LIVEDO RETICULARIS
     Dosage: 300 MG, 3 /DAY
     Route: 065
  2. PENTOXIFYLLINE ER [Suspect]
     Active Substance: PENTOXIFYLLINE
     Indication: PRODUCT USE IN UNAPPROVED INDICATION

REACTIONS (3)
  - Product use in unapproved indication [Unknown]
  - Maculopathy [Unknown]
  - Retinal artery occlusion [Recovering/Resolving]
